FAERS Safety Report 24348525 (Version 1)
Quarter: 2024Q3

REPORT INFORMATION
  Report Type: Spontaneous
  Country: IN (occurrence: IN)
  Receive Date: 20240923
  Receipt Date: 20240923
  Transmission Date: 20241016
  Serious: Yes (Other)
  Sender: AUROBINDO
  Company Number: IN-AUROBINDO-AUR-APL-2024-045672

PATIENT
  Age: 74 Year
  Sex: Male

DRUGS (3)
  1. POSACONAZOLE [Suspect]
     Active Substance: POSACONAZOLE
     Indication: Arthritis bacterial
     Dosage: 300 MILLIGRAM, TWO TIMES A DAY (ON DAY 1)
     Route: 048
  2. POSACONAZOLE [Suspect]
     Active Substance: POSACONAZOLE
     Dosage: 300 MILLIGRAM, ONCE A DAY
     Route: 048
  3. MEROPENEM [Suspect]
     Active Substance: MEROPENEM
     Indication: Arthritis bacterial
     Dosage: 1 GRAM, 3 TIMES A DAY
     Route: 042

REACTIONS (1)
  - Drug ineffective [Unknown]
